FAERS Safety Report 19101186 (Version 13)
Quarter: 2024Q4

REPORT INFORMATION
  Report Type: Spontaneous
  Country: US (occurrence: US)
  Receive Date: 20210407
  Receipt Date: 20241120
  Transmission Date: 20250114
  Serious: Yes (Hospitalization)
  Sender: AMGEN
  Company Number: US-AMGEN-USASP2021051780

PATIENT
  Age: 75 Year
  Sex: Female

DRUGS (58)
  1. OTEZLA [Suspect]
     Active Substance: APREMILAST
     Indication: Psoriasis
     Dosage: 30 MILLIGRAM, BID
     Route: 048
  2. OTEZLA [Suspect]
     Active Substance: APREMILAST
     Dosage: 30 MILLIGRAM, QD
     Route: 048
  3. OTEZLA [Suspect]
     Active Substance: APREMILAST
     Dosage: 30 MILLIGRAM, BID
     Route: 048
     Dates: start: 20220323
  4. FUROSEMIDE [Concomitant]
     Active Substance: FUROSEMIDE
     Dosage: 20 MILLIGRAM, QD(OR AS DIRECTED)
     Route: 048
  5. ARIPIPRAZOLE [Concomitant]
     Active Substance: ARIPIPRAZOLE
     Dosage: 1 DOSAGE FORM, QD (5 MG, 10 MG)
     Route: 048
     Dates: start: 20200302
  6. BETAMETHASONE DIPROPIONATE [Concomitant]
     Active Substance: BETAMETHASONE DIPROPIONATE
     Dosage: UNK UNK, QD (15 GM, 45 GM, 50 GM)
     Route: 061
  7. CALCIPOTRIENE AND BETAMETHASONE DIPROPIONATE [Concomitant]
     Active Substance: BETAMETHASONE DIPROPIONATE\CALCIPOTRIENE
     Dosage: 60 MILLIGRAM, BID
  8. CYCLOBENZAPRINE [Concomitant]
     Active Substance: CYCLOBENZAPRINE
     Indication: Muscle spasms
     Dosage: 1 DOSAGE FORM, TID (5MG, 10MG)THREE TIMES DAILY(EVERY EIGHT HOURS) AS NEEDED
     Route: 048
  9. FLUCONAZOLE [Concomitant]
     Active Substance: FLUCONAZOLE
     Dosage: 150 MILLIGRAM, QWK
     Route: 048
  10. GABAPENTIN [Concomitant]
     Active Substance: GABAPENTIN
     Indication: Pain
     Dosage: 100 MILLIGRAM, BID (AS NEEDED)
     Route: 048
  11. ACETAMINOPHEN\HYDROCODONE [Concomitant]
     Active Substance: ACETAMINOPHEN\HYDROCODONE
     Dosage: 5-325 TB, TAKE 1 TO 2 TABLETS EVERY SIX HOURS AS NEEDED
     Route: 048
  12. KETOCONAZOLE [Concomitant]
     Active Substance: KETOCONAZOLE
     Dosage: 60 MILLIGRAM (APPLY TWICE DAILY UNDER BREAST, GROIN)
  13. LOSARTAN [Concomitant]
     Active Substance: LOSARTAN
     Dosage: 100 MILLIGRAM, QD
     Route: 048
  14. METHYLPREDNISOLONE [Concomitant]
     Active Substance: METHYLPREDNISOLONE
     Dosage: 4 MILLIGRAM (6 TABLETS IN DAY WITH FOOD/TAPER DOSES AS DIRECTED)
     Route: 048
  15. NIFEDIPINE [Concomitant]
     Active Substance: NIFEDIPINE
     Dosage: 1 DOSAGE FORM, QD
     Route: 048
  16. PHENTERMINE [Concomitant]
     Active Substance: PHENTERMINE\PHENTERMINE HYDROCHLORIDE
     Dosage: 37.5 MILLIGRAM (1 CAPSULE EVERY MORNING)
     Route: 048
  17. PREDNISOLONE [Concomitant]
     Active Substance: PREDNISOLONE
     Dosage: 20 MILLIGRAM
     Route: 048
  18. SEBEX [Concomitant]
     Active Substance: SALICYLIC ACID\SULFUR
     Dosage: 118 MILLILITER, BID (APPLY TO THE SCALP AS NEEDED)
  19. TEMAZEPAM [Concomitant]
     Active Substance: TEMAZEPAM
     Dosage: 30 MILLIGRAM (1 CAPSULE AT BEDTIME)
     Route: 048
  20. TRAMADOL [Concomitant]
     Active Substance: TRAMADOL
     Indication: Pain
     Dosage: 50 MILLIGRAM (TAKE 1 TO 2 TABLETS EVERY SIX HOURS AS NEEDED)
     Route: 048
  21. TRAZODONE [Concomitant]
     Active Substance: TRAZODONE HYDROCHLORIDE
     Indication: Insomnia
     Dosage: 1 DOSAGE FORM, QD/HALF TABLET DAILY (50 MG, 100 MG)
     Route: 048
  22. VITAMIN D2 [Concomitant]
     Active Substance: ERGOCALCIFEROL
     Dosage: 1 DOSAGE FORM, QWK (EVERY 7 DAYS) 50,000 IU
     Route: 048
  23. BIOTIN [Concomitant]
     Active Substance: BIOTIN
     Dosage: 1000 MICROGRAM
  24. DIETARY SUPPLEMENT [Concomitant]
     Active Substance: DIETARY SUPPLEMENT
     Dosage: 10 MILLIGRAM
  25. TYLENOL EXTRA STRENGTH [Concomitant]
     Active Substance: ACETAMINOPHEN
     Dosage: UNK(500, 325 MG)
  26. VITAMIN B12 [Concomitant]
     Active Substance: CYANOCOBALAMIN
     Dosage: 2000 MICROGRAM
  27. AMLODIPINE BESYLATE [Concomitant]
     Active Substance: AMLODIPINE BESYLATE
     Dosage: 10 MILLIGRAM, QD (1 TABLET )
     Route: 048
  28. METOPROLOL SUCCINATE [Concomitant]
     Active Substance: METOPROLOL SUCCINATE
     Dosage: 100 MILLIGRAM, QD (2 TABLET DAILY)
     Route: 048
  29. SARNA (PRAMOXINE HYDROCHLORIDE) [Concomitant]
     Active Substance: PRAMOXINE HYDROCHLORIDE
     Dosage: 220 MILLIGRAM (1 APLLICATION LOTION TOPICALLY 2 TO 3 TIMES DAILY)
  30. FLONASE [Concomitant]
     Active Substance: FLUTICASONE PROPIONATE
     Dosage: 50 MICROGRAM (NAS SPRAY (120SPR)
  31. DESVENLAFAXINE [Concomitant]
     Active Substance: DESVENLAFAXINE
     Dosage: 50 MILLIGRAM, QD
     Route: 048
  32. HYDROXYZINE HYDROCHLORIDE [Concomitant]
     Active Substance: HYDROXYZINE HYDROCHLORIDE
     Indication: Pruritus
     Dosage: 10 MILLIGRAM (1-2 TABLET EVERY NIGHT AT BEDTIME)
     Route: 048
  33. VITAMIN D [Concomitant]
     Active Substance: VITAMIN D NOS
  34. FERROUS SULFATE [Concomitant]
     Active Substance: FERROUS SULFATE
     Dosage: 325 MILLIGRAM, QD(EVENRY MORNING BEFORE BREAKFAST)
  35. BETAMETHASONE [Concomitant]
     Active Substance: BETAMETHASONE
  36. MONTELUKAST [Concomitant]
     Active Substance: MONTELUKAST
  37. ACETAMINOPHEN [Concomitant]
     Active Substance: ACETAMINOPHEN
     Indication: Pain
     Dosage: (300/15) MILLIGRAM)  TAKE A 1 TABLET BY MOUTH EVERY 4 HOURS AS NEEDED
     Route: 048
  38. MUCINEX [Concomitant]
     Active Substance: GUAIFENESIN
     Dosage: 1200 MILLIGRAM
  39. TRIAMCINOLONE [Concomitant]
     Active Substance: TRIAMCINOLONE
     Dosage: 454 GRAM, BID
     Route: 061
  40. LISINOPRIL [Concomitant]
     Active Substance: LISINOPRIL
  41. HYDROCORTISONE [Concomitant]
     Active Substance: HYDROCORTISONE
     Indication: Pruritus
     Dosage: 454 GRAM ONCE TO TWICE DAILY AS NEEDED
     Route: 061
  42. AMMONIUM LACTATE [Concomitant]
     Active Substance: AMMONIUM LACTATE
     Indication: Skin discolouration
     Dosage: 385 GRAM, EVERY DAY AS DIRECTED
  43. AZITHROMYCIN [Concomitant]
     Active Substance: AZITHROMYCIN
     Dosage: 250 MILLIGRAM (6-PAK)
     Route: 048
  44. BENZONATATE [Concomitant]
     Active Substance: BENZONATATE
     Indication: Cough
     Dosage: 1 DOSAGE FORM, TID (100 MG, 200 MG)
     Route: 048
  45. CALCIPOTRIENE [Concomitant]
     Active Substance: CALCIPOTRIENE
     Dosage: UNK UNK, BID (120 GM, 60 GM)
     Route: 061
  46. CHLORHEXIDINE [Concomitant]
     Active Substance: CHLORHEXIDINE
     Dosage: UNK UNK, BID (473 ML) (2 CAPSULE)
  47. CICLOPIROX [Concomitant]
     Active Substance: CICLOPIROX
     Dosage: 120 MILLILITER (EVERY 7 TO 10 DAYS)
  48. DICLOFENAC [Concomitant]
     Active Substance: DICLOFENAC
     Dosage: 100 GRAM(2 GRAM 4 TIMES DAILY)
     Route: 061
  49. DIETHYLPROPION [Concomitant]
     Active Substance: DIETHYLPROPION
     Dosage: 75 MILLIGRAM, QD
     Route: 048
  50. MELATONIN [Concomitant]
     Active Substance: MELATONIN
     Dosage: 5 MILLIGRAM, QD (AT BEDTIME), 3 MG
     Route: 048
  51. ONDANSETRON [Concomitant]
     Active Substance: ONDANSETRON
     Dosage: 4 MILLIGRAM (1-2 TABLETS BY MOUTH ON TONGUE EVERY 8 HOUR AS NEEDED)
     Route: 048
  52. PREDNISONE [Concomitant]
     Active Substance: PREDNISONE
     Dosage: 10 MILLIGRAM (1 TABLET TWICE DAILY FOR 5 DAYS/1 TABLET DAILY FOR 10 DAYS)
  53. POTASSIUM CHLORIDE [Concomitant]
     Active Substance: POTASSIUM CHLORIDE
     Dosage: 20 MILLIEQUIVALENT, 10 MILLIEQUIVALENT TABLET(TAKE 1 TABLET EVERY OTHER DAY AS DIRECTED)
  54. IBUPROFEN [Concomitant]
     Active Substance: IBUPROFEN
     Dosage: 800 MILLIGRAM(THREE TIME DAILY)
     Route: 048
  55. MINERALS\VITAMINS [Concomitant]
     Active Substance: MINERALS\VITAMINS
     Dosage: UNK
  56. TRIAZOLAM [Concomitant]
     Active Substance: TRIAZOLAM
     Dosage: 0.25 MILLIGRAM(TAKE 1 TABLET  MOUTH ONE HOUR PRIOR TO DENTAL APPOINTMENT. BRING SECOND TABLET TO THE
     Route: 048
  57. PENICILLIN [Concomitant]
     Active Substance: PENICILLIN
     Dosage: 500 MILLIGRAM(TAKE 1 TABLET THREE TIME DAILY)
     Route: 048
  58. SHINGRIX [Concomitant]
     Active Substance: RECOMBINANT VARICELLA ZOSTER VIRUS (VZV) GLYCOPROTEIN E
     Dosage: 0.5 MILLIGRAM, AS NECESSARY
     Route: 030

REACTIONS (6)
  - Dyspnoea [Not Recovered/Not Resolved]
  - Sciatic nerve neuropathy [Not Recovered/Not Resolved]
  - Psoriasis [Not Recovered/Not Resolved]
  - Cardiac disorder [Not Recovered/Not Resolved]
  - Product dose omission issue [Unknown]
  - Intentional product misuse [Unknown]

NARRATIVE: CASE EVENT DATE: 20210101
